FAERS Safety Report 24071452 (Version 1)
Quarter: 2024Q3

REPORT INFORMATION
  Report Type: Report from Study
  Country: DE (occurrence: DE)
  Receive Date: 20240710
  Receipt Date: 20240710
  Transmission Date: 20241016
  Serious: No
  Sender: ROCHE
  Company Number: DE-ROCHE-3427578

PATIENT
  Age: 56 Year
  Sex: Female
  Weight: 52.8 kg

DRUGS (4)
  1. EVRYSDI [Suspect]
     Active Substance: RISDIPLAM
     Indication: Spinal muscular atrophy
     Dosage: ON 19/SEP/2023, SHE RECEIVED MOST RECENT DOSE OF RISDIPLAM.
     Route: 048
     Dates: start: 20230425
  2. EVRYSDI [Suspect]
     Active Substance: RISDIPLAM
     Dosage: ON 19/SEP/2023, 06/FEB/2024 SHE RECEIVED MOST RECENT DOSE OF RISDIPLAM.
     Route: 048
     Dates: start: 20210706
  3. PANTOPRAZOLE [Concomitant]
     Active Substance: PANTOPRAZOLE
     Dates: start: 2005
  4. ACETAMINOPHEN [Concomitant]
     Active Substance: ACETAMINOPHEN
     Dates: start: 2015

REACTIONS (3)
  - Respiratory tract infection [Recovered/Resolved]
  - Coronavirus infection [Recovered/Resolved]
  - Nasopharyngitis [Recovered/Resolved]

NARRATIVE: CASE EVENT DATE: 20230306
